FAERS Safety Report 4568153-2 (Version None)
Quarter: 2005Q1

REPORT INFORMATION
  Report Type: 
  Country: None (occurrence: None)
  Receive Date: 20050128
  Receipt Date: 20050124
  Transmission Date: 20050727
  Serious: Yes (Other)
  Sender: FDA-Public Use
  Company Number: S04-USA-08050-01

PATIENT
  Age: 43 Year
  Sex: Male
  Weight: 86.1834 kg

DRUGS (2)
  1. LEXAPRO [Suspect]
     Indication: DEPRESSION
     Dosage: 10 MG QD PO
     Route: 048
     Dates: start: 20041210, end: 20041224
  2. PROTONIX [Concomitant]

REACTIONS (3)
  - DRUG SCREEN POSITIVE [None]
  - GRAND MAL CONVULSION [None]
  - STATUS EPILEPTICUS [None]
